FAERS Safety Report 25468234 (Version 2)
Quarter: 2025Q2

REPORT INFORMATION
  Report Type: Spontaneous
  Country: US (occurrence: US)
  Receive Date: 20250623
  Receipt Date: 20250625
  Transmission Date: 20250717
  Serious: No
  Sender: MYLAN
  Company Number: US-MYLANLABS-2025M1051395

PATIENT
  Age: 76 Year
  Sex: Female

DRUGS (4)
  1. SILDENAFIL [Suspect]
     Active Substance: SILDENAFIL
     Indication: Product used for unknown indication
     Dates: start: 202505, end: 202505
  2. SILDENAFIL [Suspect]
     Active Substance: SILDENAFIL
     Route: 065
     Dates: start: 202505, end: 202505
  3. SILDENAFIL [Suspect]
     Active Substance: SILDENAFIL
     Route: 065
     Dates: start: 202505, end: 202505
  4. SILDENAFIL [Suspect]
     Active Substance: SILDENAFIL
     Dates: start: 202505, end: 202505

REACTIONS (6)
  - Respiration abnormal [Not Recovered/Not Resolved]
  - Eye irritation [Unknown]
  - Gait disturbance [Unknown]
  - Pain in extremity [Unknown]
  - Headache [Unknown]
  - Vision blurred [Unknown]

NARRATIVE: CASE EVENT DATE: 20250501
